FAERS Safety Report 20892198 (Version 4)
Quarter: 2022Q4

REPORT INFORMATION
  Report Type: Spontaneous
  Country: JP (occurrence: JP)
  Receive Date: 20220530
  Receipt Date: 20221019
  Transmission Date: 20230113
  Serious: Yes (Other)
  Sender: FDA-Public Use
  Company Number: JP-NOVARTISPH-NVSJ2022JP091016

PATIENT
  Age: 56 Year
  Sex: Male
  Weight: 58.95 kg

DRUGS (23)
  1. ENTRESTO [Suspect]
     Active Substance: SACUBITRIL\VALSARTAN
     Indication: Cardiac failure
     Dosage: 50 MG, BID
     Route: 048
     Dates: start: 20220413
  2. BISOPROLOL [Suspect]
     Active Substance: BISOPROLOL
     Indication: Hypertension
     Dosage: 2.5 MG, QD
     Route: 048
     Dates: start: 20160308, end: 20220412
  3. BISOPROLOL [Suspect]
     Active Substance: BISOPROLOL
     Dosage: 3.125 MG, QD
     Route: 048
     Dates: start: 20220413
  4. FUROSEMIDE [Concomitant]
     Active Substance: FUROSEMIDE
     Indication: Cardiac failure
     Dosage: 40 MG, QD
     Route: 048
     Dates: start: 20141008
  5. SPIRONOLACTONE [Concomitant]
     Active Substance: SPIRONOLACTONE
     Indication: Cardiac failure
     Dosage: 25 MG, QD
     Route: 048
     Dates: start: 20141008
  6. LIVALO [Concomitant]
     Active Substance: PITAVASTATIN CALCIUM
     Indication: Hyperlipidaemia
     Dosage: 2 MG, QD
     Route: 048
     Dates: start: 20161019
  7. WARFARIN [Concomitant]
     Active Substance: WARFARIN
     Indication: Thrombosis prophylaxis
     Dosage: 2 MG TO 3 MG
     Route: 048
     Dates: start: 20160518, end: 20160621
  8. WARFARIN [Concomitant]
     Active Substance: WARFARIN
     Dosage: 4 MG
     Route: 048
     Dates: start: 20160622, end: 20160719
  9. WARFARIN [Concomitant]
     Active Substance: WARFARIN
     Dosage: 5 MG
     Route: 048
     Dates: start: 20160720, end: 20160823
  10. WARFARIN [Concomitant]
     Active Substance: WARFARIN
     Dosage: 6 MG
     Route: 048
     Dates: start: 20160824, end: 20170905
  11. WARFARIN [Concomitant]
     Active Substance: WARFARIN
     Dosage: 6.5 MG
     Route: 048
     Dates: start: 20170906, end: 20171107
  12. WARFARIN [Concomitant]
     Active Substance: WARFARIN
     Dosage: 7 MG
     Route: 048
     Dates: start: 20171108, end: 20180109
  13. WARFARIN [Concomitant]
     Active Substance: WARFARIN
     Dosage: 7.5 MG
     Route: 048
     Dates: start: 20180110, end: 20180515
  14. WARFARIN [Concomitant]
     Active Substance: WARFARIN
     Dosage: 6 MG
     Route: 048
     Dates: start: 20180516, end: 20190226
  15. WARFARIN [Concomitant]
     Active Substance: WARFARIN
     Dosage: 6.5 MG
     Route: 048
     Dates: start: 20190227, end: 20190430
  16. WARFARIN [Concomitant]
     Active Substance: WARFARIN
     Dosage: 6.75 MG
     Route: 048
     Dates: start: 20190501, end: 20190723
  17. WARFARIN [Concomitant]
     Active Substance: WARFARIN
     Dosage: 7 MG
     Route: 048
     Dates: start: 20190724, end: 20191015
  18. WARFARIN [Concomitant]
     Active Substance: WARFARIN
     Dosage: 7.25 MG
     Route: 048
     Dates: start: 20191016, end: 20210112
  19. WARFARIN [Concomitant]
     Active Substance: WARFARIN
     Dosage: 7.5 MG
     Route: 048
     Dates: start: 20210113, end: 20210413
  20. WARFARIN [Concomitant]
     Active Substance: WARFARIN
     Dosage: 8 MG
     Route: 048
     Dates: start: 20210414, end: 20211012
  21. WARFARIN [Concomitant]
     Active Substance: WARFARIN
     Dosage: 9 MG
     Route: 048
     Dates: start: 20211013
  22. PEMAFIBRATE [Concomitant]
     Active Substance: PEMAFIBRATE
     Indication: Hyperlipidaemia
     Dosage: 0.1 MG, BID
     Route: 048
     Dates: start: 20211013
  23. LANSOPRAZOLE [Concomitant]
     Active Substance: LANSOPRAZOLE
     Indication: Gastric ulcer
     Dosage: 15 MG
     Route: 048
     Dates: start: 20141008

REACTIONS (1)
  - Prothrombin time ratio increased [Recovered/Resolved]

NARRATIVE: CASE EVENT DATE: 20220525
